FAERS Safety Report 8266833-9 (Version None)
Quarter: 2012Q2

REPORT INFORMATION
  Report Type: 
  Country: None (occurrence: None)
  Receive Date: 20120409
  Receipt Date: 20120330
  Transmission Date: 20120825
  Serious: No
  Sender: FDA-Public Use
  Company Number: US-BIOGENIDEC-2012BI011359

PATIENT
  Age: 51 Year
  Sex: Male

DRUGS (3)
  1. TYSABRI [Suspect]
     Route: 042
     Dates: start: 20100101, end: 20111201
  2. MULTI-VITAMINS [Concomitant]
  3. TYSABRI [Suspect]
     Indication: MULTIPLE SCLEROSIS
     Route: 042
     Dates: start: 20070424, end: 20100101

REACTIONS (4)
  - FATIGUE [None]
  - EYE PAIN [None]
  - DIPLOPIA [None]
  - HEADACHE [None]
